FAERS Safety Report 4344285-9 (Version None)
Quarter: 2004Q2

REPORT INFORMATION
  Report Type: 
  Country: None (occurrence: None)
  Receive Date: 20040419
  Receipt Date: 20040406
  Transmission Date: 20050107
  Serious: No
  Sender: FDA-Public Use
  Company Number: F01200400723

PATIENT
  Age: 79 Year
  Sex: Male

DRUGS (2)
  1. ARIXTRA [Suspect]
     Indication: HIP ARTHROPLASTY
     Dosage: 2.5 MG OD
     Route: 058
     Dates: start: 20040202, end: 20040210
  2. ARIXTRA [Suspect]
     Indication: THROMBOSIS PROPHYLAXIS
     Dosage: 2.5 MG OD
     Route: 058
     Dates: start: 20040202, end: 20040210

REACTIONS (1)
  - GASTRIC ULCER HAEMORRHAGE [None]
